FAERS Safety Report 9892382 (Version 3)
Quarter: 2014Q1

REPORT INFORMATION
  Report Type: Spontaneous
  Country: US (occurrence: US)
  Receive Date: 20140212
  Receipt Date: 20140304
  Transmission Date: 20141002
  Serious: Yes (Hospitalization)
  Sender: FDA-Public Use
  Company Number: US-009507513-1402USA004823

PATIENT
  Sex: Male

DRUGS (1)
  1. PEGINTRON [Suspect]
     Dosage: 1 STANDARD DOSE OF 1
     Route: 058
     Dates: start: 201309

REACTIONS (8)
  - Adverse event [Unknown]
  - Lymphangioma [Unknown]
  - Appetite disorder [Unknown]
  - Pain [Unknown]
  - Nausea [Unknown]
  - Diarrhoea [Unknown]
  - Drug dose omission [Unknown]
  - Product quality issue [Unknown]
